FAERS Safety Report 20110721 (Version 1)
Quarter: 2021Q4

REPORT INFORMATION
  Report Type: Spontaneous
  Country: US (occurrence: US)
  Receive Date: 20211124
  Receipt Date: 20211124
  Transmission Date: 20220303
  Serious: Yes (Other)
  Sender: FDA-Public Use
  Company Number: US-BEH-2021138415

PATIENT
  Sex: Female

DRUGS (2)
  1. HIZENTRA [Suspect]
     Active Substance: HUMAN IMMUNOGLOBULIN G
     Indication: Riley-Day syndrome
     Dosage: 30 GRAM, QW
     Route: 058
     Dates: start: 201908
  2. HIZENTRA [Suspect]
     Active Substance: HUMAN IMMUNOGLOBULIN G
     Indication: Polyneuropathy

REACTIONS (6)
  - Hypokinesia [Unknown]
  - Product supply issue [Unknown]
  - Pain [Unknown]
  - Product supply issue [Unknown]
  - No adverse event [Unknown]
  - Off label use [Unknown]
